FAERS Safety Report 13009086 (Version 1)
Quarter: 2016Q4

REPORT INFORMATION
  Report Type: Spontaneous
  Country: US (occurrence: US)
  Receive Date: 20161208
  Receipt Date: 20161208
  Transmission Date: 20170207
  Serious: Yes (Hospitalization, Other)
  Sender: FDA-Public Use
  Company Number: US-G+W LABS-GW2016US000193

PATIENT

DRUGS (1)
  1. ALBUTEROL SULFATE. [Suspect]
     Active Substance: ALBUTEROL SULFATE
     Indication: ASTHMA
     Dosage: MORE THAN 180 VIALS OVER 5 DAYS
     Route: 050

REACTIONS (3)
  - Respiratory failure [Recovered/Resolved]
  - Intentional overdose [Unknown]
  - Stress cardiomyopathy [Recovered/Resolved]
